FAERS Safety Report 12605804 (Version 5)
Quarter: 2017Q3

REPORT INFORMATION
  Report Type: Report from Study
  Country: CO (occurrence: CO)
  Receive Date: 20160729
  Receipt Date: 20170809
  Transmission Date: 20171127
  Serious: Yes (Hospitalization, Other)
  Sender: FDA-Public Use
  Company Number: PHHY2016CO099353

PATIENT
  Age: 48 Year
  Sex: Male
  Weight: 59 kg

DRUGS (3)
  1. VOTRIENT [Suspect]
     Active Substance: PAZOPANIB HYDROCHLORIDE
     Indication: METASTATIC RENAL CELL CARCINOMA
     Dosage: 800 MG, QD
     Route: 065
     Dates: start: 20140522, end: 20150209
  2. VOTRIENT [Suspect]
     Active Substance: PAZOPANIB HYDROCHLORIDE
     Dosage: 800 MG, QD
     Route: 065
     Dates: start: 20150809, end: 20150926
  3. VOTRIENT [Suspect]
     Active Substance: PAZOPANIB HYDROCHLORIDE
     Dosage: 800 MG, QD
     Route: 065
     Dates: start: 20150221, end: 20150807

REACTIONS (8)
  - Malignant neoplasm progression [Unknown]
  - Muscular weakness [Unknown]
  - Diarrhoea [Unknown]
  - Drug ineffective [Unknown]
  - Metastases to central nervous system [Not Recovered/Not Resolved]
  - Gastroenteritis [Recovered/Resolved]
  - Dizziness [Unknown]
  - Headache [Unknown]

NARRATIVE: CASE EVENT DATE: 20150908
